FAERS Safety Report 6180295-7 (Version None)
Quarter: 2009Q2

REPORT INFORMATION
  Report Type: 
  Country: None (occurrence: None)
  Receive Date: 20090504
  Receipt Date: 20090504
  Transmission Date: 20091009
  Serious: Yes (Hospitalization)
  Sender: FDA-Public Use
  Company Number: None

PATIENT
  Sex: Male
  Weight: 49.2 kg

DRUGS (5)
  1. PEG-L-ASPARAGINASE (PEGASPARAGASE, ONCOSPAR) [Suspect]
     Dosage: 1162 IU
     Dates: end: 20090429
  2. PREDNISONE [Suspect]
     Dosage: 396 MG
     Dates: end: 20090430
  3. VINCRISTINE SULFATE [Suspect]
     Dosage: 2 MG
     Dates: end: 20090426
  4. CYTARABINE [Suspect]
     Dosage: 70 MG
     Dates: end: 20090423
  5. DAUNOROBICIN [Suspect]
     Dosage: 36.8 MG
     Dates: end: 20090426

REACTIONS (14)
  - ANAPHYLACTIC REACTION [None]
  - BLOOD ALBUMIN DECREASED [None]
  - BLOOD CALCIUM DECREASED [None]
  - BLOOD GLUCOSE INCREASED [None]
  - BLOOD POTASSIUM DECREASED [None]
  - CHEST DISCOMFORT [None]
  - HAEMOGLOBIN DECREASED [None]
  - HEADACHE [None]
  - HEART RATE INCREASED [None]
  - HYPERTENSION [None]
  - NEUTROPHIL COUNT DECREASED [None]
  - PLATELET COUNT DECREASED [None]
  - THROMBOCYTOPENIA [None]
  - WHITE BLOOD CELL COUNT DECREASED [None]
